FAERS Safety Report 10447311 (Version 2)
Quarter: 2014Q4

REPORT INFORMATION
  Report Type: Spontaneous
  Country: JP (occurrence: JP)
  Receive Date: 20140911
  Receipt Date: 20141028
  Transmission Date: 20150528
  Serious: Yes (Life-Threatening, Other)
  Sender: FDA-Public Use
  Company Number: JP-MYLANLABS-2014M1004196

PATIENT

DRUGS (3)
  1. METHOTREXATE [Concomitant]
     Active Substance: METHOTREXATE
     Indication: RHEUMATOID ARTHRITIS
     Dosage: 4 MG, QW
     Route: 065
  2. PREDNISOLONE TABLETS 1^HOEI^ [Suspect]
     Active Substance: PREDNISOLONE
     Dosage: 30 MG,QD
     Route: 065
  3. PREDNISOLONE TABLETS 1^HOEI^ [Suspect]
     Active Substance: PREDNISOLONE
     Indication: RHEUMATOID ARTHRITIS
     Dosage: 5 MG, QD
     Route: 065

REACTIONS (2)
  - Thrombotic microangiopathy [Recovering/Resolving]
  - Scleroderma renal crisis [Not Recovered/Not Resolved]
